FAERS Safety Report 10374170 (Version 1)
Quarter: 2014Q3

REPORT INFORMATION
  Report Type: Spontaneous
  Country: HU (occurrence: HU)
  Receive Date: 20140811
  Receipt Date: 20140811
  Transmission Date: 20150326
  Serious: Yes (Hospitalization, Other)
  Sender: FDA-Public Use
  Company Number: HU-ROCHE-1446225

PATIENT
  Age: 71 Year
  Sex: Male

DRUGS (1)
  1. AVASTIN [Suspect]
     Active Substance: BEVACIZUMAB
     Indication: AGE-RELATED MACULAR DEGENERATION
     Dosage: 1.25 MG/0.05 ML, CONCENTRATE FOR SOLUTION FOR INFUSION
     Route: 031
     Dates: start: 201404, end: 20140722

REACTIONS (6)
  - Off label use [Unknown]
  - Suspected transmission of an infectious agent via product [Unknown]
  - Visual acuity reduced [Not Recovered/Not Resolved]
  - Inadequate aseptic technique in use of product [Unknown]
  - Cataract [Not Recovered/Not Resolved]
  - Endophthalmitis [Recovered/Resolved with Sequelae]

NARRATIVE: CASE EVENT DATE: 20140722
